FAERS Safety Report 9955267 (Version 1)
Quarter: 2014Q1

REPORT INFORMATION
  Report Type: Report from Study
  Country: US (occurrence: US)
  Receive Date: 20140304
  Receipt Date: 20140304
  Transmission Date: 20141002
  Serious: No
  Sender: FDA-Public Use
  Company Number: US-ABBVIE-13P-163-1074506-00

PATIENT
  Age: 47 Year
  Sex: Female
  Weight: 47.67 kg

DRUGS (6)
  1. HUMIRA [Suspect]
     Indication: CROHN^S DISEASE
     Dosage: 160 MILLIGRAMS LOADING DOSE
     Dates: start: 20130405, end: 20130405
  2. HUMIRA [Suspect]
  3. ESTRADIOL [Concomitant]
     Indication: HORMONE REPLACEMENT THERAPY
  4. PREDNISONE [Concomitant]
     Indication: CROHN^S DISEASE
  5. LORACET [Concomitant]
     Indication: PAIN
  6. LORACET [Concomitant]
     Indication: ARTHRITIS

REACTIONS (9)
  - Erythema [Recovered/Resolved]
  - Erythema [Recovered/Resolved]
  - Swelling face [Recovered/Resolved]
  - Paraesthesia [Recovered/Resolved]
  - Incorrect dose administered [Not Recovered/Not Resolved]
  - Panic attack [Unknown]
  - Injection site pain [Unknown]
  - Feeling abnormal [Unknown]
  - Erythema [Unknown]
